FAERS Safety Report 9208692 (Version 1)
Quarter: 2013Q2

REPORT INFORMATION
  Report Type: Spontaneous
  Country: US (occurrence: US)
  Receive Date: 20130404
  Receipt Date: 20130404
  Transmission Date: 20140414
  Serious: No
  Sender: FDA-Public Use
  Company Number: US-009507513-1303USA014349

PATIENT
  Age: 20 Year
  Sex: Female
  Weight: 67.57 kg

DRUGS (2)
  1. NEXPLANON [Suspect]
     Dosage: UNK
     Route: 059
     Dates: start: 20130325, end: 20130325
  2. NEXPLANON [Suspect]
     Dosage: UNK
     Route: 059
     Dates: start: 20130325

REACTIONS (3)
  - Device difficult to use [Unknown]
  - Needle issue [Unknown]
  - No adverse event [Unknown]
